FAERS Safety Report 14944476 (Version 6)
Quarter: 2019Q1

REPORT INFORMATION
  Report Type: Report from Study
  Country: None (occurrence: CO)
  Receive Date: 20180529
  Receipt Date: 20190208
  Transmission Date: 20190417
  Serious: Yes (Hospitalization, Other)
  Sender: FDA-Public Use
  Company Number: CO-ABBVIE-18K-036-2322950-00

PATIENT
  Age: 50 Year
  Sex: Female
  Weight: 80 kg

DRUGS (1)
  1. HUMIRA [Suspect]
     Active Substance: ADALIMUMAB
     Indication: RHEUMATOID ARTHRITIS
     Route: 058
     Dates: start: 20100924, end: 20180509

REACTIONS (17)
  - Gait inability [Unknown]
  - Bladder catheter removal [Recovering/Resolving]
  - Bacterial infection [Recovering/Resolving]
  - Osteoporosis [Unknown]
  - Mobility decreased [Unknown]
  - Dyspnoea [Not Recovered/Not Resolved]
  - Chest pain [Not Recovered/Not Resolved]
  - Malaise [Recovering/Resolving]
  - Pulmonary oedema [Recovering/Resolving]
  - Inflammation [Not Recovered/Not Resolved]
  - Muscle spasms [Unknown]
  - Anaemia [Unknown]
  - Spinal fracture [Recovering/Resolving]
  - Device breakage [Unknown]
  - Nuclear magnetic resonance imaging abnormal [Unknown]
  - Investigation abnormal [Unknown]
  - Post procedural complication [Unknown]

NARRATIVE: CASE EVENT DATE: 2018
